FAERS Safety Report 17499013 (Version 4)
Quarter: 2025Q2

REPORT INFORMATION
  Report Type: Spontaneous
  Country: CZ (occurrence: CZ)
  Receive Date: 20200304
  Receipt Date: 20250602
  Transmission Date: 20250716
  Serious: Yes (Hospitalization, Other)
  Sender: MYLAN
  Company Number: CZ-SA-2020SA012563

PATIENT
  Age: 85 Year
  Sex: Male
  Weight: 64 kg

DRUGS (9)
  1. METFORMIN [Suspect]
     Active Substance: METFORMIN HYDROCHLORIDE
     Indication: Diabetes mellitus
  2. INDAPAMIDE\PERINDOPRIL [Suspect]
     Active Substance: INDAPAMIDE\PERINDOPRIL
     Indication: Hypertension
  3. AMIODARONE [Suspect]
     Active Substance: AMIODARONE
     Indication: Product used for unknown indication
  4. TRIMETAZIDINE [Suspect]
     Active Substance: TRIMETAZIDINE
     Indication: Hypertension
  5. ASPIRIN [Suspect]
     Active Substance: ASPIRIN
     Indication: Product used for unknown indication
  6. ASPIRIN [Suspect]
     Active Substance: ASPIRIN
  7. ISOSORBIDE MONONITRATE [Suspect]
     Active Substance: ISOSORBIDE MONONITRATE
     Indication: Myocardial ischaemia
  8. ACEBUTOLOL HYDROCHLORIDE [Suspect]
     Active Substance: ACEBUTOLOL HYDROCHLORIDE
     Indication: Product used for unknown indication
  9. LEVOTHYROXINE SODIUM [Suspect]
     Active Substance: LEVOTHYROXINE SODIUM
     Indication: Hypothyroidism

REACTIONS (9)
  - Linear IgA disease [Recovered/Resolved]
  - Blister [Unknown]
  - Mucosal erosion [Unknown]
  - Pruritus [Recovered/Resolved]
  - Erythema [Recovered/Resolved]
  - Oral mucosal blistering [Recovered/Resolved]
  - Rash vesicular [Recovered/Resolved]
  - Rash erythematous [Recovered/Resolved]
  - Asthenia [Unknown]

NARRATIVE: CASE EVENT DATE: 20160101
